FAERS Safety Report 6487570-7 (Version None)
Quarter: 2009Q4

REPORT INFORMATION
  Report Type: 
  Country: None (occurrence: None)
  Receive Date: 20091210
  Receipt Date: 20091130
  Transmission Date: 20100525
  Serious: Yes (Hospitalization)
  Sender: FDA-Public Use
  Company Number: US-CELGENEUS-163-21880-08101700

PATIENT
  Sex: Female

DRUGS (5)
  1. REVLIMID [Suspect]
     Indication: MYELODYSPLASTIC SYNDROME
     Route: 048
     Dates: start: 20080509, end: 20081003
  2. ASPIRIN [Concomitant]
     Route: 048
  3. METOPROLOL [Concomitant]
     Route: 048
  4. URSODIOL [Concomitant]
     Route: 048
  5. SYNTHROID [Concomitant]
     Indication: HYPOTHYROIDISM
     Route: 048

REACTIONS (1)
  - MYOSITIS [None]
